FAERS Safety Report 9102095 (Version 9)
Quarter: 2014Q3

REPORT INFORMATION
  Report Type: Report from Study
  Country: US (occurrence: US)
  Receive Date: 20130218
  Receipt Date: 20140908
  Transmission Date: 20150326
  Serious: Yes (Hospitalization, Other)
  Sender: FDA-Public Use
  Company Number: US-BIOGENIDEC-2013BI014157

PATIENT
  Age: 73 Year
  Sex: Female

DRUGS (4)
  1. AVONEX [Suspect]
     Active Substance: INTERFERON BETA-1A
     Indication: MULTIPLE SCLEROSIS
     Route: 030
     Dates: start: 200306
  2. AVONEX [Suspect]
     Active Substance: INTERFERON BETA-1A
     Indication: MULTIPLE SCLEROSIS
     Route: 030
     Dates: end: 201408
  3. AVONEX [Suspect]
     Active Substance: INTERFERON BETA-1A
     Indication: MULTIPLE SCLEROSIS
     Route: 030
  4. NEURONTIN [Concomitant]
     Active Substance: GABAPENTIN

REACTIONS (35)
  - Lumbar spinal stenosis [Unknown]
  - Dysphonia [Unknown]
  - Peripheral swelling [Not Recovered/Not Resolved]
  - Somnolence [Unknown]
  - Arthralgia [Recovered/Resolved]
  - Intervertebral disc degeneration [Recovered/Resolved]
  - Vertebral osteophyte [Recovered/Resolved]
  - Drug ineffective [Unknown]
  - Breast cancer [Recovered/Resolved]
  - Radiculitis [Unknown]
  - Injection site bruising [Recovered/Resolved]
  - Back pain [Recovered/Resolved]
  - Memory impairment [Not Recovered/Not Resolved]
  - Speech disorder [Recovered/Resolved]
  - Neuritis [Unknown]
  - Fall [Recovered/Resolved]
  - Adverse drug reaction [Recovered/Resolved]
  - Mobility decreased [Not Recovered/Not Resolved]
  - Head injury [Recovered/Resolved]
  - Urticaria [Not Recovered/Not Resolved]
  - Tremor [Unknown]
  - Coordination abnormal [Unknown]
  - Nerve compression [Recovered/Resolved]
  - Rheumatoid arthritis [Not Recovered/Not Resolved]
  - Muscular weakness [Unknown]
  - Cervical radiculopathy [Recovered/Resolved]
  - Ataxia [Unknown]
  - Intervertebral disc displacement [Unknown]
  - Sciatica [Recovered/Resolved]
  - Injection site haemorrhage [Recovered/Resolved]
  - Procedural hypertension [Not Recovered/Not Resolved]
  - Gait disturbance [Not Recovered/Not Resolved]
  - Post procedural complication [Recovered/Resolved]
  - Hypoaesthesia [Not Recovered/Not Resolved]
  - Injection site reaction [Unknown]

NARRATIVE: CASE EVENT DATE: 2007
